FAERS Safety Report 10142285 (Version 2)
Quarter: 2014Q2

REPORT INFORMATION
  Report Type: Spontaneous
  Country: FR (occurrence: FR)
  Receive Date: 20140429
  Receipt Date: 20140512
  Transmission Date: 20141212
  Serious: Yes (Hospitalization, Other)
  Sender: FDA-Public Use
  Company Number: FR-GILEAD-2014-0100890

PATIENT
  Age: 49 Year
  Sex: Male

DRUGS (8)
  1. TRUVADA [Suspect]
     Indication: HIV INFECTION
     Dosage: 445 MG, UNK
     Route: 048
     Dates: start: 2002, end: 201008
  2. KALETRA [Concomitant]
  3. FOSAMAX [Concomitant]
  4. UVEDOSE [Concomitant]
  5. METHADONE [Concomitant]
  6. DEROXAT [Concomitant]
  7. LEXOMIL [Concomitant]
  8. SOLIAN [Concomitant]

REACTIONS (3)
  - Osteopenia [Not Recovered/Not Resolved]
  - Fanconi syndrome acquired [Recovering/Resolving]
  - Renal failure acute [Recovering/Resolving]
